FAERS Safety Report 20351233 (Version 1)
Quarter: 2022Q1

REPORT INFORMATION
  Report Type: Spontaneous
  Country: DE (occurrence: DE)
  Receive Date: 20220119
  Receipt Date: 20220119
  Transmission Date: 20220423
  Serious: Yes (Hospitalization)
  Sender: FDA-Public Use
  Company Number: DE-PFIZER INC-202101188713

PATIENT
  Age: 27 Year
  Sex: Female
  Weight: 58 kg

DRUGS (2)
  1. CYTOTEC [Suspect]
     Active Substance: MISOPROSTOL
     Indication: Labour induction
     Dosage: SINGLE (50)
     Dates: start: 201909, end: 201909
  2. CYTOTEC [Suspect]
     Active Substance: MISOPROSTOL
     Dosage: SINGLE (100, 4 HOURS LATER)
     Dates: start: 201909, end: 201909

REACTIONS (14)
  - Depression [Not Recovered/Not Resolved]
  - Obsessive-compulsive disorder [Recovered/Resolved]
  - Postpartum stress disorder [Not Recovered/Not Resolved]
  - Flashback [Recovered/Resolved]
  - Off label use [Unknown]
  - Post-traumatic headache [Not Recovered/Not Resolved]
  - Restlessness [Not Recovered/Not Resolved]
  - Insomnia [Not Recovered/Not Resolved]
  - Poor quality sleep [Recovered/Resolved]
  - Complication of pregnancy [Recovered/Resolved]
  - Disturbance in attention [Not Recovered/Not Resolved]
  - Anxiety [Not Recovered/Not Resolved]
  - Abnormal labour [Recovered/Resolved]
  - Maternal exposure during delivery [Unknown]

NARRATIVE: CASE EVENT DATE: 20190901
